FAERS Safety Report 4774039-0 (Version None)
Quarter: 2005Q3

REPORT INFORMATION
  Report Type: 
  Country: None (occurrence: None)
  Receive Date: 20050920
  Receipt Date: 20050912
  Transmission Date: 20060218
  Serious: Yes (Other)
  Sender: FDA-Public Use
  Company Number: GB-ABBOTT-05P-167-0310958-00

PATIENT
  Age: 53 Year
  Sex: Female
  Weight: 103 kg

DRUGS (2)
  1. REDUCTIL 10MG [Suspect]
     Indication: OBESITY
     Route: 048
     Dates: start: 20040604, end: 20040723
  2. CIPRALEX [Concomitant]
     Indication: DEPRESSION
     Route: 048
     Dates: start: 20031202, end: 20040521

REACTIONS (2)
  - GALACTORRHOEA [None]
  - MENORRHAGIA [None]
